FAERS Safety Report 16366449 (Version 2)
Quarter: 2019Q2

REPORT INFORMATION
  Report Type: Spontaneous
  Country: US (occurrence: US)
  Receive Date: 20190529
  Receipt Date: 20190529
  Transmission Date: 20190711
  Serious: Yes (Other)
  Sender: FDA-Public Use
  Company Number: US-TEVA-2019-US-1054789

PATIENT
  Sex: Female

DRUGS (10)
  1. AZITHROMYCIN ANHYDROUS. [Concomitant]
     Active Substance: AZITHROMYCIN ANHYDROUS
  2. BENZONATATE. [Concomitant]
     Active Substance: BENZONATATE
  3. FAMOTIDINE. [Concomitant]
     Active Substance: FAMOTIDINE
  4. GLATIRAMER [Concomitant]
     Active Substance: GLATIRAMER
  5. VITAMIN D [Concomitant]
     Active Substance: VITAMIN D NOS
  6. XULANE [Concomitant]
     Active Substance: ETHINYL ESTRADIOL\NORELGESTROMIN
  7. COPAXONE [Suspect]
     Active Substance: GLATIRAMER ACETATE
     Indication: MULTIPLE SCLEROSIS
     Route: 058
     Dates: start: 20190126
  8. GABAPENTIN. [Concomitant]
     Active Substance: GABAPENTIN
  9. PREDNISONE. [Concomitant]
     Active Substance: PREDNISONE
  10. SILDENAFIL. [Concomitant]
     Active Substance: SILDENAFIL

REACTIONS (2)
  - Multiple sclerosis relapse [Not Recovered/Not Resolved]
  - Visual impairment [Not Recovered/Not Resolved]
